FAERS Safety Report 7609209-7 (Version None)
Quarter: 2011Q3

REPORT INFORMATION
  Report Type: 
  Country: None (occurrence: None)
  Receive Date: 20110714
  Receipt Date: 20110704
  Transmission Date: 20111222
  Serious: Yes (Other)
  Sender: FDA-Public Use
  Company Number: AU-GENENTECH-321260

PATIENT

DRUGS (6)
  1. PREDNISOLONE [Suspect]
     Indication: LYMPHOMA
     Dosage: 50 MG/M2, UNK
     Route: 065
  2. VINCRISTINE [Suspect]
     Indication: LYMPHOMA
     Dosage: 1.4 MG/M2, UNK
     Route: 065
  3. METHOTREXATE [Suspect]
     Indication: LYMPHOMA
     Dosage: 12 MG/M2, UNK
     Route: 065
  4. CYCLOPHOSPHAMIDE [Suspect]
     Indication: LYMPHOMA
     Dosage: 750 MG/M2, UNK
     Route: 065
  5. DOXORUBICIN HCL [Suspect]
     Indication: LYMPHOMA
     Dosage: 50 MG/M2, UNK
     Route: 065
  6. RITUXIMAB [Suspect]
     Indication: LYMPHOMA
     Dosage: UNK
     Route: 065

REACTIONS (4)
  - NEUTROPENIA [None]
  - NAUSEA [None]
  - DIARRHOEA [None]
  - MYOCARDIAL INFARCTION [None]
